FAERS Safety Report 20697462 (Version 1)
Quarter: 2022Q2

REPORT INFORMATION
  Report Type: Spontaneous
  Country: BE (occurrence: BE)
  Receive Date: 20220411
  Receipt Date: 20220411
  Transmission Date: 20220720
  Serious: Yes (Other)
  Sender: FDA-Public Use
  Company Number: BE-009507513-2105BEL006157

PATIENT
  Sex: Male
  Weight: 68 kg

DRUGS (5)
  1. CARBOPLATIN [Suspect]
     Active Substance: CARBOPLATIN
     Dosage: 524.55 MG, CYCLIC (DOSE 1)
     Dates: start: 20210218
  2. CARBOPLATIN [Suspect]
     Active Substance: CARBOPLATIN
     Dosage: 535.1 MG, CYCLIC (DOSE 2)
     Dates: start: 20210311
  3. CARBOPLATIN [Suspect]
     Active Substance: CARBOPLATIN
     Dosage: 551.95 MG, CYCLIC (DOSE 3)
     Dates: start: 20210401
  4. PACLITAXEL [Suspect]
     Active Substance: PACLITAXEL
     Dosage: 175 MG/M2, EVERY 3 WEEKS FOR 4 CYCLES
     Dates: start: 20210218
  5. KEYTRUDA [Suspect]
     Active Substance: PEMBROLIZUMAB
     Dosage: 200 MG, EVERY 3 WEEKS FOR 4 CYCLES
     Dates: start: 20210218, end: 20210425

REACTIONS (4)
  - Gamma-glutamyltransferase increased [Unknown]
  - Alanine aminotransferase increased [Unknown]
  - Aspartate aminotransferase increased [Unknown]
  - Blood alkaline phosphatase increased [Unknown]

NARRATIVE: CASE EVENT DATE: 20210304
